FAERS Safety Report 4422473-0 (Version None)
Quarter: 2004Q3

REPORT INFORMATION
  Report Type: 
  Country: None (occurrence: None)
  Receive Date: 20040806
  Receipt Date: 20040727
  Transmission Date: 20050211
  Serious: Yes (Death)
  Sender: FDA-Public Use
  Company Number: US-JNJFOC-20040602879

PATIENT
  Age: 2 Week

DRUGS (1)
  1. ABCIXIMAB (ABCIXIMAB) INJECTION [Suspect]
     Indication: PHLEBOTHROMBOSIS
     Dosage: INTRAVENOUS
     Route: 042

REACTIONS (3)
  - DIALYSIS [None]
  - RENAL FAILURE [None]
  - SEPSIS [None]
